APPROVED DRUG PRODUCT: DILAUDID
Active Ingredient: HYDROMORPHONE HYDROCHLORIDE
Strength: 5MG/5ML
Dosage Form/Route: SOLUTION;ORAL
Application: N019891 | Product #001 | TE Code: AA
Applicant: RHODES PHARMACEUTICALS LP
Approved: Dec 7, 1992 | RLD: Yes | RS: Yes | Type: RX